FAERS Safety Report 4975917-X (Version None)
Quarter: 2006Q2

REPORT INFORMATION
  Report Type: 
  Country: None (occurrence: None)
  Receive Date: 20060411
  Receipt Date: 20060331
  Transmission Date: 20061013
  Serious: Yes (Death)
  Sender: FDA-Public Use
  Company Number: 163-21880-06040007

PATIENT
  Age: 40 Year
  Sex: Male

DRUGS (1)
  1. REVLIMID [Suspect]
     Indication: MYELODYSPLASTIC SYNDROME
     Dosage: 10MG, QD; ORAL
     Route: 048
     Dates: start: 20060311, end: 20060316

REACTIONS (1)
  - DEATH [None]
